FAERS Safety Report 8942536 (Version 1)
Quarter: 2012Q4

REPORT INFORMATION
  Report Type: 
  Country: JP (occurrence: JP)
  Receive Date: 20121204
  Receipt Date: 20121204
  Transmission Date: 20130627
  Serious: Yes (Hospitalization, Other)
  Sender: FDA-Public Use
  Company Number: JP-009507513-1212JPN000245

PATIENT
  Age: 45 Year
  Sex: Female
  Weight: 55 kg

DRUGS (9)
  1. PEGINTRON [Suspect]
     Indication: CHRONIC HEPATITIS C
     Dosage: 1.5 Microgram per kilogram, UNK
     Route: 058
     Dates: start: 20120808, end: 20120905
  2. PEGINTRON [Suspect]
     Dosage: 0.7 Microgram per kilogram, UNK
     Route: 058
     Dates: start: 20120906, end: 20120912
  3. PEGINTRON [Suspect]
     Dosage: 1.1 Microgram per kilogram, UNK
     Route: 058
     Dates: start: 20120913, end: 20120919
  4. PEGINTRON [Suspect]
     Dosage: 1.5 Microgram per kilogram, UNK
     Route: 058
     Dates: start: 20120920, end: 20121018
  5. PEGINTRON [Suspect]
     Dosage: UNK
  6. REBETOL [Suspect]
     Indication: CHRONIC HEPATITIS C
     Dosage: 600 mg, qd
     Route: 048
     Dates: start: 20120808, end: 20120905
  7. REBETOL [Suspect]
     Dosage: 400 mg, UNK
     Route: 048
     Dates: start: 20120905, end: 20120912
  8. REBETOL [Suspect]
     Dosage: 200 mg, UNK
     Route: 048
     Dates: start: 20120913, end: 20121001
  9. TELAVIC [Suspect]
     Indication: CHRONIC HEPATITIS C
     Dosage: 1500 mg,qd
     Route: 048
     Dates: start: 20120808, end: 20121018

REACTIONS (2)
  - Anaemia [Recovering/Resolving]
  - Delusion [Not Recovered/Not Resolved]
